FAERS Safety Report 23627979 (Version 3)
Quarter: 2024Q2

REPORT INFORMATION
  Report Type: Spontaneous
  Country: JP (occurrence: None)
  Receive Date: 20240313
  Receipt Date: 20240424
  Transmission Date: 20240716
  Serious: Yes (Hospitalization)
  Sender: FDA-Public Use
  Company Number: 2024A047895

PATIENT
  Age: 66 Year
  Sex: Female
  Weight: 52 kg

DRUGS (3)
  1. FASLODEX [Suspect]
     Active Substance: FULVESTRANT
     Indication: Breast cancer female
     Route: 030
     Dates: start: 20230426, end: 20240221
  2. VERZENIO [Concomitant]
     Active Substance: ABEMACICLIB
     Indication: Breast cancer female
     Route: 048
     Dates: start: 20230906, end: 20240327
  3. IBRANCE [Concomitant]
     Active Substance: PALBOCICLIB
     Indication: Breast cancer female
     Route: 048
     Dates: start: 20220608, end: 20230905

REACTIONS (1)
  - Injection site panniculitis [Recovering/Resolving]

NARRATIVE: CASE EVENT DATE: 20240221
